FAERS Safety Report 9207323 (Version 7)
Quarter: 2018Q1

REPORT INFORMATION
  Report Type: Report from Study
  Country: JP (occurrence: JP)
  Receive Date: 20130403
  Receipt Date: 20180202
  Transmission Date: 20180509
  Serious: Yes (Hospitalization)
  Sender: FDA-Public Use
  Company Number: JP-UCBSA-081926

PATIENT
  Age: 69 Year
  Sex: Female
  Weight: 49 kg

DRUGS (32)
  1. CERTOLIZUMAB PEGOL RA [Suspect]
     Active Substance: CERTOLIZUMAB PEGOL
     Dosage: 200 MG, EV 2 WEEKS(QOW)
     Route: 058
     Dates: start: 20091210, end: 201006
  2. PREDNISOLONE. [Concomitant]
     Active Substance: PREDNISOLONE
     Indication: ASTHMA
     Dosage: 2.5 MG, ONCE DAILY (QD)
     Route: 048
     Dates: start: 20121227, end: 20130326
  3. LOXOPROFEN SODIUM HYDRATE [Concomitant]
     Active Substance: LOXOPROFEN SODIUM DIHYDRATE
     Indication: RHEUMATOID ARTHRITIS
     Dosage: 60 MG, AS NEEDED (PRN)
     Route: 048
     Dates: start: 20130221, end: 20130326
  4. SODIUM RABEPRAZOLE [Concomitant]
     Active Substance: RABEPRAZOLE SODIUM
     Indication: PROPHYLAXIS AGAINST GASTROINTESTINAL ULCER
     Dosage: 10 MG, ONCE DAILY (QD)
     Route: 048
     Dates: start: 20121121
  5. TERIPARATIDE [Concomitant]
     Active Substance: TERIPARATIDE
     Indication: OSTEOPOROSIS
     Dosage: GENETICAL ECOMBINATION
     Route: 058
     Dates: start: 20130109
  6. CERTOLIZUMAB PEGOL RA [Suspect]
     Active Substance: CERTOLIZUMAB PEGOL
     Dosage: 200 MG, EV 2 WEEKS(QOW)
     Route: 058
     Dates: start: 201007, end: 20110413
  7. CARBOCISTEINE [Concomitant]
     Active Substance: CARBOCYSTEINE
     Indication: SINUSITIS
     Dosage: DOSE UNKNOWN; X2/DAY
     Route: 048
     Dates: start: 20130326
  8. TRAMADOL HYDROCHLORIDE AND ACETAMINOPHEN [Concomitant]
     Active Substance: ACETAMINOPHEN\TRAMADOL HYDROCHLORIDE
     Indication: RHEUMATOID ARTHRITIS
     Dosage: AS NEEDED
     Route: 048
     Dates: start: 20130227
  9. SODIUM GUALENATE HYDRATE/L-GLUTAMINE [Concomitant]
     Indication: PROPHYLAXIS AGAINST GASTROINTESTINAL ULCER
     Dosage: WITH SODIUM GUALENATE
     Route: 048
     Dates: start: 20110427, end: 20130326
  10. AMPHOTERICIN B. [Concomitant]
     Active Substance: AMPHOTERICIN B
     Indication: OESOPHAGEAL CANDIDIASIS
     Dosage: 100 MG, 2X/DAY (BID)
     Route: 048
     Dates: start: 20121121
  11. THEOPHYLLINE [Concomitant]
     Active Substance: THEOPHYLLINE ANHYDROUS
     Indication: ASTHMA
     Dosage: 200 MG, ONCE DAILY (QD)
     Route: 048
     Dates: start: 20110427
  12. SULFAMETHOXAZOLE/TRIMETHOPRIM [Concomitant]
     Active Substance: SULFAMETHOXAZOLE\TRIMETHOPRIM
     Indication: INFECTION PROPHYLAXIS
     Dosage: 1 TAB 2X/DAY
     Route: 048
     Dates: start: 20110217
  13. DICLOFENAC SODIUM. [Concomitant]
     Active Substance: DICLOFENAC SODIUM
     Indication: RHEUMATOID ARTHRITIS
     Dosage: AS NEEDED
     Route: 054
     Dates: start: 20130228, end: 20130326
  14. LYSOZYME HYDROCHLORIDE [Concomitant]
     Active Substance: LYSOZYME HYDROCHLORIDE
     Indication: SINUSITIS
     Dosage: 90 MG, 3X/DAY (TID)
     Route: 048
     Dates: start: 20130326, end: 20130326
  15. SODIUM GUALENATE HYDRATE [Concomitant]
     Active Substance: SODIUM GUALENATE MONOHYDRATE
     Indication: DRY MOUTH
     Dosage: DOSE UNKNOWN ; 4-5X/DAY
     Route: 048
     Dates: start: 20130326, end: 20130326
  16. KETOPROFEN. [Concomitant]
     Active Substance: KETOPROFEN
     Indication: RHEUMATOID ARTHRITIS
     Dosage: ADEQUATE DOSE 2X/DAY (BID)
     Route: 062
     Dates: start: 20121121
  17. LOXOPROFEN SODIUM HYDRATE [Concomitant]
     Active Substance: LOXOPROFEN SODIUM DIHYDRATE
     Indication: COMPRESSION FRACTURE
     Dosage: ADEQUATE DOSE 1-2/DAY
     Route: 062
     Dates: start: 20130221
  18. MAXACALCITOL [Concomitant]
     Active Substance: MAXACALCITOL
     Indication: ECZEMA
     Dosage: ADEQUATE DOSE 2X/DAY
     Route: 061
     Dates: start: 20110801
  19. CLARITHROMYCIN. [Concomitant]
     Active Substance: CLARITHROMYCIN
     Indication: SINUSITIS
     Dosage: 200 MG, 2X/DAY (BID)
     Route: 048
     Dates: start: 20130326, end: 20130326
  20. AMLODIPINE BESILATE [Concomitant]
     Active Substance: AMLODIPINE BESYLATE
     Indication: HYPERTENSION
     Dosage: 5 MG, ONCE DAILY (QD)
     Route: 048
     Dates: start: 20130214
  21. PREDNISOLONE. [Concomitant]
     Active Substance: PREDNISOLONE
     Dosage: 20 MG/DAY
  22. ATORVASTATIN CALCIUM HYDRATE [Concomitant]
     Active Substance: ATORVASTATIN CALCIUM
     Indication: HYPERCHOLESTEROLAEMIA
     Dosage: 5 MG, ONCE DAILY (QD)
     Route: 048
     Dates: start: 20121219, end: 20130326
  23. CEVIMELINE HYDROCHLORIDE HYDRATE [Concomitant]
     Active Substance: CEVIMELINE HYDROCHLORIDE
     Indication: DRY MOUTH
     Dosage: DOSE UNKNOWN; X1/DAY
     Route: 048
     Dates: start: 20130326, end: 20130326
  24. SENNOSIDE [Concomitant]
     Active Substance: SENNOSIDES
     Indication: CONSTIPATION
     Dosage: 36 MG, ONCE DAILY (QD)
     Route: 048
     Dates: start: 20110928
  25. SALAZOSULFAPYRIDINE [Concomitant]
     Active Substance: SULFASALAZINE
     Indication: RHEUMATOID ARTHRITIS
     Dosage: 500 MG, 2X/DAY (BID)
     Route: 048
     Dates: start: 20110502
  26. ISONIAZIDE [Concomitant]
     Active Substance: ISONIAZID
     Indication: TUBERCULOSIS
     Dosage: 300 MG, ONCE DAILY (QD)
     Route: 048
     Dates: start: 20110427
  27. HEPARINOID [Concomitant]
     Active Substance: CHONDROITIN SULFATE (BOVINE)
     Indication: ECZEMA
     Dosage: ADEQUATE DOSE 2X/DAY; LOTION
     Route: 061
     Dates: start: 20121010
  28. DIBASIC POTASSIUM PHOSPHATE INORGANIC SALTS COMBINED DRUG [Concomitant]
     Indication: DRY MOUTH
     Dosage: DOSE UNKNOWN; X5/DAY
     Route: 048
     Dates: start: 20130326, end: 20130326
  29. CERTOLIZUMAB PEGOL RA [Suspect]
     Active Substance: CERTOLIZUMAB PEGOL
     Indication: RHEUMATOID ARTHRITIS
     Dosage: 200 MG, EV 2 WEEKS(QOW)
     Route: 058
     Dates: start: 20110510
  30. LEVOCETIRIZINE HYDROCHLORIDE [Concomitant]
     Active Substance: LEVOCETIRIZINE HYDROCHLORIDE
     Indication: ECZEMA
     Dosage: 5 MG, ONCE DAILY (QD)
     Route: 048
     Dates: start: 20121107, end: 20130326
  31. BECLOMETASONE DIPROPIONATE [Concomitant]
     Active Substance: BECLOMETHASONE DIPROPIONATE
     Indication: ECZEMA
     Dosage: ADEQUATE DOSE 2X/DAY
     Route: 061
     Dates: start: 20130109
  32. SODIUM GUALENATE HYDRATE/L-GLUTAMINE [Concomitant]
     Indication: PROPHYLAXIS AGAINST GASTROINTESTINAL ULCER
     Dosage: WITH L-GUALENATE
     Route: 048
     Dates: start: 20110427, end: 20130326

REACTIONS (2)
  - Acute sinusitis [Recovered/Resolved]
  - Interstitial lung disease [Recovered/Resolved]

NARRATIVE: CASE EVENT DATE: 20130327
